FAERS Safety Report 12382603 (Version 1)
Quarter: 2016Q2

REPORT INFORMATION
  Report Type: Spontaneous
  Country: US (occurrence: US)
  Receive Date: 20160518
  Receipt Date: 20160518
  Transmission Date: 20160815
  Serious: No
  Sender: FDA-Public Use
  Company Number: US-MALLINCKRODT-T201601232

PATIENT
  Age: 34 Year
  Sex: Female

DRUGS (17)
  1. MUPIROCIN. [Concomitant]
     Active Substance: MUPIROCIN
  2. CEPHALEXIN. [Concomitant]
     Active Substance: CEPHALEXIN
  3. METHYLPRED [Concomitant]
     Active Substance: METHYLPREDNISOLONE
  4. EPIPEN [Concomitant]
     Active Substance: EPINEPHRINE
  5. METHOTREXATE [Concomitant]
     Active Substance: METHOTREXATE
  6. HYDRALAZINE [Concomitant]
     Active Substance: HYDRALAZINE HYDROCHLORIDE
  7. H.P. ACTHAR [Suspect]
     Active Substance: CORTICOTROPIN
     Indication: SYSTEMIC LUPUS ERYTHEMATOSUS
     Dosage: 80U 2X WEEKLY X10 WEEKS
     Route: 058
     Dates: start: 20160301
  8. IV ERMECTIN [Concomitant]
  9. FOLIC ACID. [Concomitant]
     Active Substance: FOLIC ACID
  10. PREDNISONE. [Concomitant]
     Active Substance: PREDNISONE
  11. PERMETHRIN. [Concomitant]
     Active Substance: PERMETHRIN
  12. BACLOFEN. [Concomitant]
     Active Substance: BACLOFEN
  13. HYDROXYZINE [Concomitant]
     Active Substance: HYDROXYZINE\HYDROXYZINE HYDROCHLORIDE
  14. AMITRIPTYLINE [Concomitant]
     Active Substance: AMITRIPTYLINE
  15. LOSARTAN. [Concomitant]
     Active Substance: LOSARTAN
  16. TRIAMCINOLONE [Concomitant]
     Active Substance: TRIAMCINOLONE
  17. METOPROL XL [Concomitant]

REACTIONS (2)
  - Nausea [Unknown]
  - Vomiting [Unknown]

NARRATIVE: CASE EVENT DATE: 201603
